FAERS Safety Report 12963176 (Version 1)
Quarter: 2016Q4

REPORT INFORMATION
  Report Type: Report from Study
  Country: BR (occurrence: BR)
  Receive Date: 20161122
  Receipt Date: 20161122
  Transmission Date: 20170207
  Serious: Yes (Death)
  Sender: FDA-Public Use
  Company Number: BR-ORION CORPORATION ORION PHARMA-ENTC2016-0689

PATIENT
  Sex: Male

DRUGS (7)
  1. STALEVO [Suspect]
     Active Substance: CARBIDOPA\ENTACAPONE\LEVODOPA
     Dosage: STRENGTH: 150 MG, 4 OR 5 DOSES
     Route: 048
  2. EXELON PATCH [Suspect]
     Active Substance: RIVASTIGMINE
     Indication: DEMENTIA
     Dosage: STRENGTH: 4.6 MG; PATCH 5 CM2
     Route: 062
     Dates: start: 2011
  3. EXELON PATCH [Suspect]
     Active Substance: RIVASTIGMINE
     Dosage: STRENGTH: 9.5 MG; PATCH 10 CM2
     Route: 062
     Dates: start: 2012
  4. STALEVO [Suspect]
     Active Substance: CARBIDOPA\ENTACAPONE\LEVODOPA
     Indication: PARKINSON^S DISEASE
     Dosage: STRENGTH: 50 MG, ALTERNATE DOSES
     Route: 048
     Dates: start: 2011
  5. PROLOPA [Concomitant]
     Active Substance: BENSERAZIDE\LEVODOPA
     Route: 065
  6. EXELON PATCH [Suspect]
     Active Substance: RIVASTIGMINE
     Dosage: STRENGTH: 13.3 MG; PATCH 15 CM2
     Route: 062
     Dates: end: 20160925
  7. ENTARKIN [Concomitant]
     Active Substance: ENTACAPONE
     Route: 065

REACTIONS (5)
  - Underweight [Unknown]
  - Decreased appetite [Unknown]
  - Mastication disorder [Unknown]
  - Parkinson^s disease [Fatal]
  - Dysphagia [Unknown]
